FAERS Safety Report 5965117-9 (Version None)
Quarter: 2008Q4

REPORT INFORMATION
  Report Type: 
  Country: None (occurrence: None)
  Receive Date: 20081125
  Receipt Date: 20081120
  Transmission Date: 20090506
  Serious: Yes (Hospitalization)
  Sender: FDA-Public Use
  Company Number: PHBS2008ES06415

PATIENT

DRUGS (4)
  1. EVEROLIMUS [Suspect]
     Indication: HEART TRANSPLANT
  2. CYCLOSPORINE [Suspect]
     Indication: HEART TRANSPLANT
  3. BASILIXIMAB [Suspect]
     Indication: HEART TRANSPLANT
  4. STEROIDS NOS [Suspect]

REACTIONS (4)
  - DEBRIDEMENT [None]
  - LYMPHOCELE [None]
  - MEDIASTINITIS [None]
  - SURGERY [None]
